FAERS Safety Report 17436836 (Version 2)
Quarter: 2020Q1

REPORT INFORMATION
  Report Type: Spontaneous
  Country: DE (occurrence: DE)
  Receive Date: 20200219
  Receipt Date: 20200305
  Transmission Date: 20200409
  Serious: No
  Sender: FDA-Public Use
  Company Number: DE-EMD SERONO-9145872

PATIENT
  Age: 41 Year
  Sex: Female

DRUGS (1)
  1. MAVENCLAD [Suspect]
     Active Substance: CLADRIBINE
     Indication: SECONDARY PROGRESSIVE MULTIPLE SCLEROSIS

REACTIONS (1)
  - Multiple sclerosis relapse [Unknown]
